FAERS Safety Report 8831472 (Version 4)
Quarter: 2014Q1

REPORT INFORMATION
  Report Type: Spontaneous
  Country: US (occurrence: US)
  Receive Date: 20121009
  Receipt Date: 20140124
  Transmission Date: 20141002
  Serious: Yes (Hospitalization, Disabling, Other)
  Sender: FDA-Public Use
  Company Number: US-009507513-1205USA00973

PATIENT
  Sex: Female

DRUGS (7)
  1. FOSAMAX [Suspect]
     Indication: OSTEOPOROSIS
     Dosage: 10 MG, QD
     Route: 048
     Dates: start: 19980428, end: 20010728
  2. FOSAMAX [Suspect]
     Dosage: 70 MG, QW
     Route: 048
     Dates: start: 20010729, end: 20060105
  3. FOSAMAX [Suspect]
     Dosage: 70 MG, QOW
     Route: 048
     Dates: start: 20060106
  4. FOSAMAX [Suspect]
     Dosage: 70 MG, QW
     Route: 048
     Dates: start: 20080121, end: 201007
  5. FOSAMAX PLUS D [Suspect]
     Indication: OSTEOPOROSIS
     Dosage: UNK
     Route: 048
     Dates: end: 201010
  6. ACTONEL [Suspect]
     Indication: OSTEOPOROSIS
     Dosage: 150 MG, QM
     Dates: start: 20100315, end: 20101006
  7. ALENDRONATE SODIUM [Suspect]
     Dosage: 70 MG, QW
     Dates: start: 20071015, end: 20100315

REACTIONS (53)
  - Femur fracture [Recovering/Resolving]
  - Femur fracture [Recovering/Resolving]
  - Fall [Unknown]
  - Fall [Recovered/Resolved]
  - Loss of consciousness [Recovered/Resolved]
  - Hypoglycaemia [Recovered/Resolved]
  - Urinary tract infection [Recovered/Resolved]
  - Transfusion [Recovered/Resolved]
  - Aortic valve replacement [Unknown]
  - Mitral valve replacement [Unknown]
  - Pleurisy [Unknown]
  - Cardiac pacemaker insertion [Recovered/Resolved]
  - Intramedullary rod insertion [Recovering/Resolving]
  - Anaemia [Recovered/Resolved]
  - Dehydration [Recovered/Resolved]
  - Renal failure acute [Recovered/Resolved]
  - Cardiac pacemaker insertion [Recovered/Resolved]
  - Hearing impaired [Unknown]
  - Vertigo [Recovered/Resolved]
  - Dizziness [Recovered/Resolved]
  - Tendonitis [Unknown]
  - Dehydration [Recovered/Resolved]
  - Atrial fibrillation [Not Recovered/Not Resolved]
  - Type 2 diabetes mellitus [Unknown]
  - Hypertension [Unknown]
  - Hyperlipidaemia [Unknown]
  - Antiphospholipid syndrome [Unknown]
  - Deep vein thrombosis [Recovered/Resolved]
  - Cardiomegaly [Unknown]
  - Arthritis [Unknown]
  - Arthropathy [Recovering/Resolving]
  - Osteoarthritis [Not Recovered/Not Resolved]
  - Cardiac failure congestive [Recovered/Resolved]
  - Abscess oral [Recovered/Resolved]
  - Tooth extraction [Recovered/Resolved]
  - Herpes zoster [Recovered/Resolved]
  - Anaemia [Recovered/Resolved]
  - Rib fracture [Recovered/Resolved]
  - Myelodysplastic syndrome [Unknown]
  - Rubber sensitivity [Unknown]
  - Hysterectomy [Unknown]
  - Blood glucose increased [Recovered/Resolved]
  - Balance disorder [Unknown]
  - Intervertebral disc degeneration [Unknown]
  - Osteoma [Unknown]
  - Hypothyroidism [Unknown]
  - Spinal fracture [Unknown]
  - Vitamin D deficiency [Unknown]
  - Inappropriate schedule of drug administration [Unknown]
  - Mass [Recovered/Resolved]
  - Nodule [Recovered/Resolved]
  - Arthralgia [Unknown]
  - Gastrooesophageal reflux disease [Unknown]
